FAERS Safety Report 5622163-2 (Version None)
Quarter: 2008Q1

REPORT INFORMATION
  Report Type: 
  Country: None (occurrence: None)
  Receive Date: 20080211
  Receipt Date: 20080129
  Transmission Date: 20080703
  Serious: Yes (Hospitalization, Disabling, Other)
  Sender: FDA-Public Use
  Company Number: GB-RANBAXY-2008RR-12838

PATIENT

DRUGS (11)
  1. CIPROFLOXACIN [Suspect]
     Dosage: 500 MG, BID
     Route: 048
     Dates: start: 20071228, end: 20080101
  2. ALENDRONIC ACID 70MG TABLETS [Concomitant]
     Dosage: 70 MG, 1/WEEK
     Route: 048
  3. CITALOPRAM HYDROBROMIDE [Concomitant]
     Dosage: 10 MG, QD
     Route: 048
     Dates: start: 20071225
  4. CITALOPRAM HYDROBROMIDE [Concomitant]
     Dosage: 2 DF, QD
     Route: 048
     Dates: start: 20071231, end: 20080110
  5. CLARITHROMYCIN 500MG TABLETS [Concomitant]
     Dosage: 500 MG, BID
     Route: 048
     Dates: start: 20071218, end: 20071224
  6. CO-CODAMOL [Concomitant]
     Dosage: 2 DF, PRN
     Route: 048
  7. FERROUS SULPHATE 200MG TABLETS [Concomitant]
     Dosage: 200 MG, BID
     Route: 048
     Dates: start: 20071219, end: 20071221
  8. FOLIC ACID TABLETS BP 5MG [Concomitant]
     Dosage: 5 MG, QD
     Route: 048
     Dates: start: 20071221
  9. LANSOPRAZOLE 30 MG GASTRO-RESISTANT CAPSULES [Concomitant]
     Dosage: 30 MG, QD
     Route: 048
     Dates: start: 20071220
  10. PREDNISOLONE [Concomitant]
     Dosage: UNK
     Route: 048
     Dates: start: 20071220
  11. QUININE SULPHATE TABLETS [Concomitant]
     Dosage: 300 MG, QD
     Route: 048

REACTIONS (1)
  - NEUROPATHY PERIPHERAL [None]
